FAERS Safety Report 18164979 (Version 3)
Quarter: 2020Q3

REPORT INFORMATION
  Report Type: Report from Study
  Country: DE (occurrence: DE)
  Receive Date: 20200818
  Receipt Date: 20200903
  Transmission Date: 20201103
  Serious: Yes (Hospitalization, Other)
  Sender: FDA-Public Use
  Company Number: DE-MYLANLABS-2020M1071440

PATIENT
  Age: 74 Year
  Sex: Female

DRUGS (22)
  1. DULOXETINE. [Concomitant]
     Active Substance: DULOXETINE
     Indication: DEPRESSION
     Dosage: 60 MG, QD
     Route: 065
  2. QUETIAPINE. [Concomitant]
     Active Substance: QUETIAPINE
     Indication: AGITATION
     Dosage: UNK
  3. LEVODOPA/CARBIDOPA [Concomitant]
     Active Substance: CARBIDOPA\LEVODOPA
     Indication: PARKINSON^S DISEASE
     Dosage: 100/25 MG AT 21 O^CLOCK FOR NIGHT PERIOD
     Route: 065
  4. METFORMIN [Concomitant]
     Active Substance: METFORMIN HYDROCHLORIDE
     Indication: TYPE 2 DIABETES MELLITUS
     Dosage: 2000 MILLIGRAM, QD, 1000 MG TWICE DAILY (1?0?1)
     Route: 065
  5. ROPINIROLE. [Concomitant]
     Active Substance: ROPINIROLE
     Indication: PARKINSON^S DISEASE
     Dosage: PROLONGED RELEASE 4 MG/DAY (0?0?1)
     Route: 065
     Dates: end: 202007
  6. THYRONAJOD [Concomitant]
     Active Substance: LEVOTHYROXINE SODIUM\POTASSIUM IODIDE
     Indication: HYPOTHYROIDISM
     Dosage: 75 MICROGRAM, QD, 75 UG, QD
     Route: 065
  7. PREGABALIN. [Concomitant]
     Active Substance: PREGABALIN
     Indication: DIABETIC NEUROPATHY
     Dosage: UNK
  8. CLOZAPINE. [Suspect]
     Active Substance: CLOZAPINE
     Indication: AGITATION
     Dosage: 12.5 MILLIGRAM, QD, 6.25 MG, 0?1?1, (AT LUNCHTIME AND AT NIGHT)
     Route: 065
  9. VITAMIN B12 [Concomitant]
     Active Substance: CYANOCOBALAMIN
     Indication: VITAMIN B12 DEFICIENCY
     Dosage: UNK
     Route: 065
  10. MIRABEGRON [Concomitant]
     Active Substance: MIRABEGRON
     Indication: URGE INCONTINENCE
     Dosage: UNK
     Route: 065
  11. QUETIAPINE. [Concomitant]
     Active Substance: QUETIAPINE
     Indication: HALLUCINATION, VISUAL
  12. VALORON N                          /00628301/ [Concomitant]
     Active Substance: NALOXONE HYDROCHLORIDE\TILIDINE HYDROCHLORIDE
     Indication: PAIN
     Dosage: 200 MILLIGRAM, QD, 100 MG TWICE DAILY (1?0?1)
     Route: 065
     Dates: end: 202007
  13. QUETIAPINE. [Concomitant]
     Active Substance: QUETIAPINE
     Indication: HALLUCINATION, VISUAL
     Dosage: 50 MILLIGRAM, QD, 50 MG/DAY (0?0?1)
     Route: 065
     Dates: start: 202007
  14. APOMORPHINE [Suspect]
     Active Substance: APOMORPHINE
     Indication: PARKINSONISM
     Dosage: 2.5 MG IN 1 H, 50MG/50ML; 7 ? 21 O^CLOCK
     Route: 058
     Dates: start: 20180411
  15. TOUJEO [Concomitant]
     Active Substance: INSULIN GLARGINE
     Indication: TYPE 2 DIABETES MELLITUS
     Dosage: 12 INTERNATIONAL UNIT, 12 IU
     Route: 065
     Dates: start: 202007
  16. PROPIVERINE [Concomitant]
     Active Substance: PROPIVERINE
     Indication: URGE INCONTINENCE
     Dosage: 30 MILLIGRAM, QD, 30 MG/DAY (1?0?0)
     Route: 065
  17. PREGABALIN. [Concomitant]
     Active Substance: PREGABALIN
     Indication: PAIN
     Dosage: 75 MILLIGRAM, QD, 25 MG, THREE TIMES PER DAY (1?1?1)
     Route: 065
  18. MACROGOL [Concomitant]
     Active Substance: POLYETHYLENE GLYCOLS
     Indication: CONSTIPATION
     Dosage: UNK UNK, QD, 1?0?0
     Route: 065
  19. SITAGLIPTIN [Concomitant]
     Active Substance: SITAGLIPTIN
     Indication: TYPE 2 DIABETES MELLITUS
     Dosage: 100 MILLIGRAM, QD, 100 MG/DAY (1?0?0)
     Route: 065
  20. RIVASTIGMINE. [Concomitant]
     Active Substance: RIVASTIGMINE
     Indication: PRODUCT USED FOR UNKNOWN INDICATION
     Dosage: 4.6 MILLIGRAM, QD, 4.6 MG/24 H
     Route: 065
  21. CLOZAPINE. [Suspect]
     Active Substance: CLOZAPINE
     Indication: HALLUCINATION, VISUAL
     Dosage: UNK
     Route: 065
  22. TOUJEO [Concomitant]
     Active Substance: INSULIN GLARGINE
     Dosage: UNK, ACCORDING TO BLOOD SUGAR
     Route: 065

REACTIONS (10)
  - Condition aggravated [Unknown]
  - Gait disturbance [Unknown]
  - Hand fracture [Recovered/Resolved]
  - Somnolence [Unknown]
  - Fatigue [Unknown]
  - Hallucination, visual [Unknown]
  - Fall [Unknown]
  - Hypotonia [Unknown]
  - Vitamin B12 deficiency [Unknown]
  - Agitation [Unknown]

NARRATIVE: CASE EVENT DATE: 2020
